FAERS Safety Report 5565446-7 (Version None)
Quarter: 2007Q4

REPORT INFORMATION
  Report Type: 
  Country: None (occurrence: None)
  Receive Date: 20071218
  Receipt Date: 20071206
  Transmission Date: 20080405
  Serious: Yes (Other)
  Sender: FDA-Public Use
  Company Number: US-PFIZER INC-2007083684

PATIENT
  Sex: Male
  Weight: 106.6 kg

DRUGS (15)
  1. CHANTIX [Suspect]
     Indication: SMOKING CESSATION THERAPY
     Route: 048
  2. CHANTIX [Suspect]
     Indication: TOBACCO USER
  3. AMLODIPINE [Concomitant]
  4. ISOSORBIDE DINITRATE [Concomitant]
  5. RANITIDINE HCL [Concomitant]
     Indication: GASTRIC DISORDER
  6. SULFASALAZINE [Concomitant]
  7. LISINOPRIL [Concomitant]
  8. FUROSEMIDE [Concomitant]
     Dosage: DAILY DOSE:20MG
  9. HYDROCHLOROTHIAZIDE [Concomitant]
  10. PREDNISONE [Concomitant]
  11. VERAPAMIL [Concomitant]
  12. SPIRONOLACTONE [Concomitant]
  13. NORVASC [Concomitant]
  14. IMDUR [Concomitant]
  15. LASIX [Concomitant]

REACTIONS (5)
  - DIZZINESS [None]
  - FEELING ABNORMAL [None]
  - FEELING HOT [None]
  - INCREASED APPETITE [None]
  - LUNG DISORDER [None]
